FAERS Safety Report 8168197-8 (Version None)
Quarter: 2012Q1

REPORT INFORMATION
  Report Type: 
  Country: None (occurrence: None)
  Receive Date: 20120227
  Receipt Date: 20120222
  Transmission Date: 20120608
  Serious: Yes (Death, Other)
  Sender: FDA-Public Use
  Company Number: PHFR2012GB001340

PATIENT
  Age: 56 Year
  Sex: Male
  Weight: 78 kg

DRUGS (5)
  1. CLOZAPINE [Suspect]
     Indication: SCHIZOAFFECTIVE DISORDER
     Dosage: 300 MG, UNK
     Route: 048
     Dates: start: 20110624
  2. LITHIUM CARBONATE [Concomitant]
     Dosage: UNK UKN, UNK
  3. PIRENZEPINE [Suspect]
     Indication: SALIVARY HYPERSECRETION
     Dosage: 50 MG, UNK
     Dates: start: 20110713
  4. OMEPRAZOLE [Concomitant]
     Dosage: UNK UKN, UNK
  5. ZOPICLONE [Concomitant]
     Dosage: UNK UKN, UNK

REACTIONS (4)
  - FAECALOMA [None]
  - INTESTINAL OBSTRUCTION [None]
  - ASPIRATION [None]
  - CARDIAC ARREST [None]
